FAERS Safety Report 14131307 (Version 2)
Quarter: 2018Q1

REPORT INFORMATION
  Report Type: Report from Study
  Country: US (occurrence: US)
  Receive Date: 20171026
  Receipt Date: 20180123
  Transmission Date: 20180508
  Serious: No
  Sender: FDA-Public Use
  Company Number: US-AMGEN-USASL2017137389

PATIENT
  Age: 66 Year
  Sex: Male

DRUGS (1)
  1. REPATHA [Suspect]
     Active Substance: EVOLOCUMAB
     Indication: PRODUCT USED FOR UNKNOWN INDICATION
     Dosage: 420 (MG/3.5ML), QMO
     Route: 065
     Dates: start: 2017

REACTIONS (6)
  - Back pain [Unknown]
  - Pruritus [Unknown]
  - Pruritus generalised [Unknown]
  - Injection site induration [Recovered/Resolved]
  - Injection site erythema [Unknown]
  - Rhinorrhoea [Unknown]

NARRATIVE: CASE EVENT DATE: 2017
